FAERS Safety Report 4335473-6 (Version None)
Quarter: 2004Q2

REPORT INFORMATION
  Report Type: 
  Country: None (occurrence: None)
  Receive Date: 20040409
  Receipt Date: 20040211
  Transmission Date: 20050107
  Serious: Yes (Other)
  Sender: FDA-Public Use
  Company Number: DE-BRISTOL-MYERS SQUIBB COMPANY-12504122

PATIENT
  Age: 60 Year
  Sex: Female
  Weight: 77 kg

DRUGS (8)
  1. TAXOL [Suspect]
     Indication: BREAST CANCER METASTATIC
     Route: 042
     Dates: start: 20031118, end: 20031118
  2. KEVATRIL [Concomitant]
     Indication: PREMEDICATION
     Route: 042
  3. TAVEGIL [Concomitant]
     Indication: PREMEDICATION
     Route: 042
  4. RANITIDINE [Concomitant]
     Indication: PREMEDICATION
     Route: 042
  5. TAMOXISTAD [Concomitant]
  6. REMIFEMIN [Concomitant]
  7. SOTALOL HCL [Concomitant]
  8. CORNARON [Concomitant]

REACTIONS (5)
  - ASTHENIA [None]
  - DEHYDRATION [None]
  - GENERAL PHYSICAL CONDITION ABNORMAL [None]
  - PSYCHOMOTOR SKILLS IMPAIRED [None]
  - URINARY INCONTINENCE [None]
